FAERS Safety Report 5868414-0 (Version None)
Quarter: 2008Q3

REPORT INFORMATION
  Report Type: 
  Country: None (occurrence: None)
  Receive Date: 20080828
  Receipt Date: 20080813
  Transmission Date: 20090109
  Serious: Yes (Other)
  Sender: FDA-Public Use
  Company Number: MC200800380

PATIENT

DRUGS (2)
  1. ANGIOMAX [Suspect]
     Dosage: BOLUS, INTRAVENOUS; INTRAVENOUS
     Route: 042
     Dates: start: 20080813, end: 20080813
  2. ANGIOMAX [Suspect]
     Dosage: BOLUS, INTRAVENOUS; INTRAVENOUS
     Route: 042
     Dates: start: 20080813

REACTIONS (1)
  - ARTERY DISSECTION [None]
